FAERS Safety Report 9629554 (Version 3)
Quarter: 2013Q4

REPORT INFORMATION
  Report Type: Spontaneous
  Country: IT (occurrence: IT)
  Receive Date: 20131017
  Receipt Date: 20131206
  Transmission Date: 20140711
  Serious: Yes (Hospitalization)
  Sender: FDA-Public Use
  Company Number: IT-ELI_LILLY_AND_COMPANY-IT201310002466

PATIENT
  Age: 71 Year
  Sex: Male

DRUGS (4)
  1. HUMALOG LISPRO [Suspect]
     Indication: TYPE 1 DIABETES MELLITUS
     Dosage: 12 IU, QD
     Route: 058
     Dates: start: 20130714, end: 20130818
  2. HUMALOG LISPRO [Suspect]
     Dosage: 11 IU, QD
     Dates: start: 20130827
  3. LANTUS [Suspect]
     Indication: TYPE 1 DIABETES MELLITUS
     Dosage: 4 IU, QD
     Route: 058
     Dates: start: 20130714
  4. OMEPRAZOLE [Concomitant]
     Route: 048

REACTIONS (5)
  - Hypoglycaemia [Recovered/Resolved]
  - Altered state of consciousness [Recovered/Resolved]
  - Decreased appetite [Unknown]
  - Hypoglycaemia [Unknown]
  - Hyperglycaemia [Unknown]
